FAERS Safety Report 8985636 (Version 3)
Quarter: 2013Q1

REPORT INFORMATION
  Report Type: Spontaneous
  Country: ZA (occurrence: ZA)
  Receive Date: 20121226
  Receipt Date: 20130102
  Transmission Date: 20140127
  Serious: Yes (Death, Hospitalization)
  Sender: FDA-Public Use
  Company Number: ZA-JNJFOC-20121209137

PATIENT
  Sex: Female
  Weight: 43 kg

DRUGS (1)
  1. REVELLEX [Suspect]
     Indication: COLITIS ULCERATIVE
     Route: 042
     Dates: start: 20121201

REACTIONS (2)
  - Rectal haemorrhage [Fatal]
  - Weight decreased [Fatal]
